FAERS Safety Report 7693915-2 (Version None)
Quarter: 2011Q3

REPORT INFORMATION
  Report Type: 
  Country: None (occurrence: None)
  Receive Date: 20110819
  Receipt Date: 20110816
  Transmission Date: 20111222
  Serious: Yes (Hospitalization)
  Sender: FDA-Public Use
  Company Number: US-SANOFI-AVENTIS-2011SA043904

PATIENT
  Age: 61 Year
  Sex: Female

DRUGS (13)
  1. NORCO [Concomitant]
     Indication: PAIN
     Dosage: HALF OR ONE OR TWO TABS EVERY FOUR OR SIX HOURS PRN
  2. GEMZAR [Concomitant]
  3. NEUPOGEN [Concomitant]
     Dosage: TAKEN 300 MCG DAILY FOR 2 DAYS AFTER WEEKLY TOPOTECAN CHEMOTHERAPY, REPEATED THROUGH CHEMOTHERAPY
     Route: 058
  4. COUMADIN [Concomitant]
  5. TOPOTECAN [Concomitant]
  6. COREG [Concomitant]
  7. MULTAQ [Suspect]
     Route: 048
     Dates: start: 20100821
  8. FIORINAL W/CODEINE [Concomitant]
     Indication: MIGRAINE
     Dosage: ONE OR TWO TABLETS AS NEEDED
  9. COUMADIN [Concomitant]
  10. ZOFRAN [Concomitant]
     Route: 048
  11. LOVENOX [Concomitant]
     Route: 065
     Dates: start: 20110607
  12. ZANTAC [Concomitant]
  13. POTASSIUM [Concomitant]
     Route: 048
     Dates: start: 20110701

REACTIONS (1)
  - ARRHYTHMIA [None]
